FAERS Safety Report 13304185 (Version 2)
Quarter: 2018Q3

REPORT INFORMATION
  Report Type: Report from Study
  Country: US (occurrence: US)
  Receive Date: 20170308
  Receipt Date: 20180926
  Transmission Date: 20181010
  Serious: Yes (Other)
  Sender: FDA-Public Use
  Company Number: PHEH2013US018242

PATIENT
  Age: 49 Year
  Sex: Female

DRUGS (4)
  1. GILENYA [Suspect]
     Active Substance: FINGOLIMOD HYDROCHLORIDE
     Indication: RELAPSING-REMITTING MULTIPLE SCLEROSIS
     Dosage: 0.5 MG, QD
     Route: 048
     Dates: start: 201102
  2. LYRICA [Concomitant]
     Active Substance: PREGABALIN
  3. BACLOFEN. [Concomitant]
     Active Substance: BACLOFEN
  4. CYMBALTA [Concomitant]
     Active Substance: DULOXETINE HYDROCHLORIDE

REACTIONS (5)
  - Vision blurred [Recovering/Resolving]
  - Herpes zoster [Not Recovered/Not Resolved]
  - Hypoaesthesia [Recovering/Resolving]
  - Multiple sclerosis relapse [Unknown]
  - Paraesthesia [Recovering/Resolving]

NARRATIVE: CASE EVENT DATE: 20130820
